FAERS Safety Report 19437983 (Version 1)
Quarter: 2021Q2

REPORT INFORMATION
  Report Type: Spontaneous
  Country: AU (occurrence: AU)
  Receive Date: 20210618
  Receipt Date: 20210618
  Transmission Date: 20210717
  Serious: Yes (Other)
  Sender: FDA-Public Use
  Company Number: NVSC2021AU129606

PATIENT
  Sex: Female

DRUGS (2)
  1. PREDNISOLON SANDOZ [Suspect]
     Active Substance: PREDNISOLONE
     Indication: CHRONIC GRAFT VERSUS HOST DISEASE
     Dosage: 15 MG, UNKNOWN
     Route: 065
  2. MYCOPHENOLATE MOFETIL. [Suspect]
     Active Substance: MYCOPHENOLATE MOFETIL
     Indication: CHRONIC GRAFT VERSUS HOST DISEASE
     Dosage: 1.5 G, TID
     Route: 065

REACTIONS (8)
  - Muscle atrophy [Unknown]
  - Cushingoid [Unknown]
  - Cytomegalovirus infection [Unknown]
  - Toxicity to various agents [Unknown]
  - Hyperglycaemia [Unknown]
  - Chronic graft versus host disease [Recovering/Resolving]
  - Diarrhoea [Unknown]
  - Weaning failure [Unknown]
